FAERS Safety Report 10814945 (Version 1)
Quarter: 2015Q1

REPORT INFORMATION
  Report Type: Report from Study
  Country: US (occurrence: US)
  Receive Date: 20150218
  Receipt Date: 20150218
  Transmission Date: 20150721
  Serious: No
  Sender: FDA-Public Use
  Company Number: US-ABBVIE-14K-163-1279631-00

PATIENT
  Age: 64 Year
  Sex: Female
  Weight: 63.56 kg

DRUGS (4)
  1. HUMIRA [Suspect]
     Active Substance: ADALIMUMAB
     Indication: CROHN^S DISEASE
     Dates: start: 200802, end: 200802
  2. HUMIRA [Suspect]
     Active Substance: ADALIMUMAB
     Dosage: AT DAY 15
     Dates: start: 200802, end: 200802
  3. METOPROLOL [Concomitant]
     Active Substance: METOPROLOL
     Indication: ARRHYTHMIA
  4. HUMIRA [Suspect]
     Active Substance: ADALIMUMAB
     Dosage: ON DAY 29
     Dates: start: 200803

REACTIONS (8)
  - Device issue [Unknown]
  - Injection site bruising [Not Recovered/Not Resolved]
  - Underdose [Unknown]
  - Device issue [Unknown]
  - Underdose [Unknown]
  - Underdose [Unknown]
  - Injection site haemorrhage [Not Recovered/Not Resolved]
  - Device issue [Unknown]

NARRATIVE: CASE EVENT DATE: 20140805
